FAERS Safety Report 8561211-7 (Version None)
Quarter: 2012Q3

REPORT INFORMATION
  Report Type: 
  Country: None (occurrence: None)
  Receive Date: 20120723
  Receipt Date: 20120705
  Transmission Date: 20120928
  Serious: Yes (Life-Threatening, Hospitalization)
  Sender: FDA-Public Use
  Company Number: DSA_58532_2012

PATIENT
  Age: 48 Year
  Sex: Female

DRUGS (6)
  1. EPIRUBICIN [Suspect]
     Indication: NON-SMALL CELL LUNG CANCER
     Dosage: 166MG EVERY CYCLE; 140MG, EVERY CYCLE
     Dates: start: 20101006, end: 20101006
  2. EPIRUBICIN [Suspect]
     Indication: NON-SMALL CELL LUNG CANCER
     Dosage: 166MG EVERY CYCLE; 140MG, EVERY CYCLE
     Dates: start: 20101027
  3. FLUOROURACIL [Suspect]
     Indication: BREAST CANCER
     Dosage: 830 MG EVERY CYCLE; 700 MG, EVERY CYCLE
     Dates: start: 20101006
  4. FLUOROURACIL [Suspect]
     Indication: BREAST CANCER
     Dosage: 830 MG EVERY CYCLE; 700 MG, EVERY CYCLE
     Dates: start: 20101027
  5. CYCLOPHOSPHAMIDE [Suspect]
     Indication: NON-SMALL CELL LUNG CANCER
     Dosage: 830MG, EVERY CYCLE; 800MG, EVERY CYCLE
     Dates: start: 20101027
  6. CYCLOPHOSPHAMIDE [Suspect]
     Indication: NON-SMALL CELL LUNG CANCER
     Dosage: 830MG, EVERY CYCLE; 800MG, EVERY CYCLE
     Dates: start: 20101006, end: 20101006

REACTIONS (4)
  - FEBRILE NEUTROPENIA [None]
  - NAUSEA [None]
  - VOMITING [None]
  - OROPHARYNGEAL PAIN [None]
